FAERS Safety Report 8511071 (Version 4)
Quarter: 2015Q1

REPORT INFORMATION
  Report Type: Spontaneous
  Country: US (occurrence: US)
  Receive Date: 20120413
  Receipt Date: 20150220
  Transmission Date: 20150721
  Serious: Yes (Other)
  Sender: FDA-Public Use
  Company Number: US-FRI-1000029680

PATIENT
  Age: 47 Year
  Sex: Female

DRUGS (4)
  1. DALIRESP [Suspect]
     Active Substance: ROFLUMILAST
     Indication: ASTHMA
     Dosage: 500 MCG
     Route: 048
     Dates: start: 20120116, end: 20120406
  2. VENTOLIN [Suspect]
     Active Substance: ALBUTEROL SULFATE
     Indication: ASTHMA
     Dates: end: 20120406
  3. SYMBICORT [Concomitant]
     Active Substance: BUDESONIDE\FORMOTEROL FUMARATE DIHYDRATE
     Indication: ASTHMA
     Dosage: 2 PUFFS TWICE DAILY
     Route: 048
  4. LEVAQUIN [Concomitant]
     Active Substance: LEVOFLOXACIN
     Indication: BRONCHITIS
     Dates: end: 2012

REACTIONS (11)
  - Fatigue [Unknown]
  - Chest pain [Unknown]
  - Emotional distress [Unknown]
  - Dizziness [Unknown]
  - Insomnia [Unknown]
  - Off label use [Recovered/Resolved]
  - Asthma [Unknown]
  - Headache [Unknown]
  - Sinusitis [Unknown]
  - Supraventricular tachycardia [Recovering/Resolving]
  - Dyspnoea [Unknown]

NARRATIVE: CASE EVENT DATE: 201201
